FAERS Safety Report 5619818-2 (Version None)
Quarter: 2008Q1

REPORT INFORMATION
  Report Type: 
  Country: None (occurrence: None)
  Receive Date: 20080208
  Receipt Date: 20080129
  Transmission Date: 20080703
  Serious: Yes (Hospitalization, Other)
  Sender: FDA-Public Use
  Company Number: PHBS2007JP17092

PATIENT
  Age: 86 Year
  Sex: Male
  Weight: 65 kg

DRUGS (17)
  1. WARFARIN SODIUM [Concomitant]
     Indication: ATRIAL FIBRILLATION
     Dosage: 2 MG
     Route: 048
  2. ANTIHYPERTENSIVES [Concomitant]
  3. TEGRETOL [Suspect]
     Indication: DEMENTIA
     Dosage: 200 MG/DAY
     Route: 048
     Dates: end: 20070701
  4. TEGRETOL [Suspect]
     Dosage: 400 MG/DAY
     Route: 048
     Dates: start: 20070701, end: 20071006
  5. AVISHOT [Concomitant]
     Dosage: 50 MG/DAY
     Route: 048
  6. DIOVAN [Suspect]
     Indication: CARDIAC FAILURE CHRONIC
     Dosage: 80 MG/DAY
     Route: 048
  7. BUFFERIN [Suspect]
     Indication: CARDIAC FAILURE CHRONIC
     Dosage: 81 MG/DAY
     Route: 048
  8. ACARDI [Concomitant]
     Indication: CARDIAC FAILURE CHRONIC
     Dosage: 1.25 MG/DAY
     Route: 048
  9. LASIX [Suspect]
     Indication: CARDIAC FAILURE CHRONIC
     Dosage: 20 MG, QD
     Route: 048
  10. CLONAZEPAM [Suspect]
     Indication: INSOMNIA
     Dosage: 0.5 MG/DAY
     Route: 048
     Dates: end: 20071011
  11. MAGMITT KENEI [Concomitant]
     Indication: CONSTIPATION
     Dosage: 990 MG/DAY
     Route: 048
  12. TRICHLORMETHIAZIDE [Concomitant]
     Dosage: 2 MG/DAY
     Route: 048
  13. ENSURE [Concomitant]
     Dosage: 2 MG/DAY
     Route: 048
  14. FOLIAMIN [Concomitant]
     Route: 048
     Dates: start: 20071013
  15. KENTAN [Concomitant]
     Dosage: 60 MG/DAY
     Route: 048
  16. HAPSTAR ID [Concomitant]
     Route: 061
  17. ZINC SULFATE [Concomitant]
     Dosage: 30 MG,UNK
     Route: 048
     Dates: start: 20071018

REACTIONS (10)
  - ANAEMIA [None]
  - BLOOD POTASSIUM DECREASED [None]
  - FOLATE DEFICIENCY [None]
  - HAEMATOCRIT DECREASED [None]
  - HAEMOGLOBIN DECREASED [None]
  - LYMPHADENITIS [None]
  - MYELODYSPLASTIC SYNDROME [None]
  - PLATELET COUNT DECREASED [None]
  - RED BLOOD CELL COUNT DECREASED [None]
  - WHITE BLOOD CELL COUNT DECREASED [None]
